FAERS Safety Report 7281039 (Version 10)
Quarter: 2014Q2

REPORT INFORMATION
  Report Type: Spontaneous
  Country: US (occurrence: US)
  Receive Date: 20100217
  Receipt Date: 20140401
  Transmission Date: 20141212
  Serious: Yes (Hospitalization, Other)
  Sender: FDA-Public Use
  Company Number: US-ALEXION-A201000111

PATIENT
  Age: 78 Year
  Sex: Female
  Weight: 59 kg

DRUGS (20)
  1. SOLIRIS 300MG [Suspect]
     Indication: PAROXYSMAL NOCTURNAL HAEMOGLOBINURIA
     Dosage: 600 MG, QW
     Route: 042
     Dates: start: 20090223
  2. SOLIRIS 300MG [Suspect]
     Dosage: 900 MG, Q2W
     Route: 042
     Dates: start: 20090427, end: 20100602
  3. LASIX                              /00032601/ [Concomitant]
     Dosage: 40 MG, QD
     Route: 048
  4. SYNTHROID [Concomitant]
     Dosage: 25 UG, QD
     Route: 048
  5. LIPITOR [Concomitant]
     Dosage: 40 MG, QD
     Route: 048
  6. PRILOSEC                           /00661201/ [Concomitant]
     Dosage: 40 MG, BID
     Route: 048
  7. COLACE [Concomitant]
     Dosage: 100 MG, BID
     Route: 048
  8. K-DUR [Concomitant]
     Dosage: 20 MEQ, QD
     Route: 048
  9. REGLAN                             /00041901/ [Concomitant]
     Dosage: UNK
     Route: 048
  10. FOLIC ACID [Concomitant]
     Dosage: 1 MG, QD
  11. GABAPENTIN [Concomitant]
     Dosage: 300 MG, TID
  12. HYDROCHLOROTHIAZIDE [Concomitant]
     Dosage: 50 MG TWICE A WEEK
  13. DIGOXIN [Concomitant]
     Dosage: 0.125 MG TWICE A WEEK
  14. NEXIUM                             /01479302/ [Concomitant]
     Dosage: 40 MG, BID
  15. CARDIZEM                           /00489701/ [Concomitant]
     Dosage: 90 MG, TID
  16. DEMADEX                            /01036501/ [Concomitant]
     Dosage: 20 MG, QID
  17. PREDNISONE [Concomitant]
     Dosage: 20 MG, QD
  18. METOPROLOL [Concomitant]
     Dosage: 100 MG, QD
  19. OXYGEN [Suspect]
     Indication: CARDIAC DISORDER
     Dosage: 2L PER NASAL CANNULA
     Route: 045
     Dates: start: 201005
  20. OXYGEN [Suspect]
     Indication: DYSPNOEA

REACTIONS (17)
  - Cardiac failure congestive [Not Recovered/Not Resolved]
  - Renal disorder [Unknown]
  - Quality of life decreased [Unknown]
  - Transfusion [Unknown]
  - Cardiac disorder [Unknown]
  - Renal failure chronic [Unknown]
  - Creatinine renal clearance increased [Unknown]
  - Pulmonary hypertension [Unknown]
  - Catheterisation cardiac [Unknown]
  - Anaemia [Unknown]
  - Packed red blood cell transfusion [Recovered/Resolved]
  - Kidney infection [Unknown]
  - Dyspnoea [Unknown]
  - Chest pain [Unknown]
  - Abdominal pain [Unknown]
  - Nasopharyngitis [Not Recovered/Not Resolved]
  - Fatigue [Unknown]
